FAERS Safety Report 23226194 (Version 2)
Quarter: 2024Q2

REPORT INFORMATION
  Report Type: Report from Study
  Country: US (occurrence: US)
  Receive Date: 20231124
  Receipt Date: 20240512
  Transmission Date: 20240716
  Serious: No
  Sender: FDA-Public Use
  Company Number: US-ALXN-A202308890

PATIENT
  Age: 58 Year
  Sex: Female

DRUGS (1)
  1. ULTOMIRIS [Suspect]
     Active Substance: RAVULIZUMAB-CWVZ
     Indication: Myasthenia gravis
     Dosage: UNK
     Route: 065
     Dates: start: 202207

REACTIONS (4)
  - Arthritis [Unknown]
  - Back pain [Unknown]
  - Arthralgia [Unknown]
  - Trigger finger [Recovering/Resolving]

NARRATIVE: CASE EVENT DATE: 20230501
